FAERS Safety Report 4430716-2 (Version None)
Quarter: 2004Q3

REPORT INFORMATION
  Report Type: 
  Country: None (occurrence: None)
  Receive Date: 20040819
  Receipt Date: 20040819
  Transmission Date: 20050211
  Serious: Yes (Life-Threatening, Hospitalization)
  Sender: FDA-Public Use
  Company Number: None

PATIENT
  Age: 64 Year
  Sex: Male
  Weight: 79.1 kg

DRUGS (13)
  1. NAPROXEN [Suspect]
  2. ATORVASTATIN CALCIUM [Concomitant]
  3. CLOPIDROGREL BISULFATE [Concomitant]
  4. ISOSORBIDE MONONITRATE [Concomitant]
  5. FELODIPINE [Concomitant]
  6. VITAMIN E [Concomitant]
  7. ALBUTEROL [Concomitant]
  8. METOPROLOL TARTRATE [Concomitant]
  9. IRBESARTAN [Concomitant]
  10. FUROSEMIDE [Concomitant]
  11. HYDROCHLOROTHIAZIDE [Concomitant]
  12. OMEPRAZOLE [Concomitant]
  13. ASPIRIN [Concomitant]

REACTIONS (3)
  - DUODENAL ULCER [None]
  - GASTRITIS [None]
  - MELAENA [None]
